FAERS Safety Report 7595781-2 (Version None)
Quarter: 2011Q3

REPORT INFORMATION
  Report Type: 
  Country: None (occurrence: None)
  Receive Date: 20110707
  Receipt Date: 20110628
  Transmission Date: 20111222
  Serious: Yes (Other)
  Sender: FDA-Public Use
  Company Number: JP-PFIZER INC-2011141394

PATIENT
  Age: 78 Year
  Sex: Female

DRUGS (2)
  1. ZYVOX [Suspect]
     Indication: STAPHYLOCOCCAL INFECTION
     Dosage: 1200 MG, 1X/DAY
     Route: 041
     Dates: start: 20110611, end: 20110623
  2. ZYVOX [Suspect]
     Dosage: 1200 MG, 1X/DAY
     Dates: start: 20110625

REACTIONS (3)
  - VOMITING [None]
  - NAUSEA [None]
  - MOUTH HAEMORRHAGE [None]
